FAERS Safety Report 12280414 (Version 1)
Quarter: 2016Q2

REPORT INFORMATION
  Report Type: Spontaneous
  Country: US (occurrence: US)
  Receive Date: 20160419
  Receipt Date: 20160419
  Transmission Date: 20160815
  Serious: Yes (Hospitalization)
  Sender: FDA-Public Use
  Company Number: US-BEH-2016061247

PATIENT
  Sex: Male
  Weight: 87 kg

DRUGS (23)
  1. MONTELUKAST [Concomitant]
     Active Substance: MONTELUKAST SODIUM
  2. DESMOPRESSIN [Concomitant]
     Active Substance: DESMOPRESSIN
  3. ADVAIR HFA [Concomitant]
     Active Substance: FLUTICASONE PROPIONATE\SALMETEROL XINAFOATE
  4. OMEPRAZOLE. [Concomitant]
     Active Substance: OMEPRAZOLE
  5. XOPENEX [Concomitant]
     Active Substance: LEVALBUTEROL HYDROCHLORIDE
  6. HIZENTRA [Suspect]
     Active Substance: HUMAN IMMUNOGLOBULIN G
     Indication: IMMUNODEFICIENCY COMMON VARIABLE
     Route: 058
     Dates: start: 20160129
  7. EPIPEN [Concomitant]
     Active Substance: EPINEPHRINE
  8. OXYCODONE [Concomitant]
     Active Substance: OXYCODONE
  9. ATORVASTATIN [Concomitant]
     Active Substance: ATORVASTATIN
  10. DRUG USED IN DIABETES [Concomitant]
     Active Substance: UNSPECIFIED INGREDIENT
  11. HIZENTRA [Suspect]
     Active Substance: HUMAN IMMUNOGLOBULIN G
     Indication: WHITE BLOOD CELL COUNT ABNORMAL
     Route: 058
     Dates: start: 20160129
  12. DIPHENHYDRAMINE. [Concomitant]
     Active Substance: DIPHENHYDRAMINE
  13. CARTIA XT [Concomitant]
     Active Substance: DILTIAZEM HYDROCHLORIDE
  14. POTASSIUM CHLORIDE. [Concomitant]
     Active Substance: POTASSIUM CHLORIDE
  15. LEVOTHYROXINE. [Concomitant]
     Active Substance: LEVOTHYROXINE
  16. LEVALBUTEROL. [Concomitant]
     Active Substance: LEVALBUTEROL
  17. GUAIFENESIN. [Concomitant]
     Active Substance: GUAIFENESIN
  18. ACETAMINOPHEN. [Concomitant]
     Active Substance: ACETAMINOPHEN
  19. ALENDRONATE [Concomitant]
     Active Substance: ALENDRONATE SODIUM
  20. VITAMIN D [Concomitant]
     Active Substance: CHOLECALCIFEROL
  21. LEVAQUIN [Concomitant]
     Active Substance: LEVOFLOXACIN
  22. LISINOPRIL. [Concomitant]
     Active Substance: LISINOPRIL
  23. PREDNISONE. [Concomitant]
     Active Substance: PREDNISONE

REACTIONS (1)
  - Medical observation [Unknown]
